FAERS Safety Report 19828348 (Version 3)
Quarter: 2021Q4

REPORT INFORMATION
  Report Type: Spontaneous
  Country: FR (occurrence: FR)
  Receive Date: 20210914
  Receipt Date: 20211111
  Transmission Date: 20220303
  Serious: Yes (Other)
  Sender: FDA-Public Use
  Company Number: FR-MYLANLABS-2021M1061563

PATIENT
  Age: 76 Year
  Sex: Female
  Weight: 66 kg

DRUGS (2)
  1. BUPIVACAINE [Suspect]
     Active Substance: BUPIVACAINE
     Indication: Product used for unknown indication
     Dosage: 2.4 UNK
     Dates: start: 20210906
  2. MORPHINE [Concomitant]
     Active Substance: MORPHINE
     Dosage: 100 MICROGRAM

REACTIONS (1)
  - Drug ineffective [Unknown]

NARRATIVE: CASE EVENT DATE: 20210906
